FAERS Safety Report 4845983-0 (Version None)
Quarter: 2005Q4

REPORT INFORMATION
  Report Type: 
  Country: None (occurrence: None)
  Receive Date: 20051206
  Receipt Date: 20051124
  Transmission Date: 20060501
  Serious: Yes (Death, Hospitalization)
  Sender: FDA-Public Use
  Company Number: CA-JNJFOC-20051106071

PATIENT
  Sex: Male

DRUGS (1)
  1. REMICADE [Suspect]
     Dosage: PATIENT RECEIVED 3 INDUCTION DOSES OF REMICADE.
     Route: 042

REACTIONS (3)
  - MALAISE [None]
  - SPINAL OSTEOARTHRITIS [None]
  - UNEVALUABLE EVENT [None]
